FAERS Safety Report 16215738 (Version 1)
Quarter: 2019Q2

REPORT INFORMATION
  Report Type: Spontaneous
  Country: FR (occurrence: FR)
  Receive Date: 20190419
  Receipt Date: 20190419
  Transmission Date: 20190711
  Serious: Yes (Hospitalization)
  Sender: FDA-Public Use
  Company Number: FR-BAUSCH-BL-2019-011070

PATIENT
  Age: 82 Year
  Sex: Female

DRUGS (3)
  1. STERDEX [Suspect]
     Active Substance: DEXAMETHASONE\OXYTETRACYCLINE
     Indication: EYE INFECTION
     Dosage: SINGLE-DOSE CONTAINER
     Route: 047
     Dates: start: 201811, end: 20190321
  2. COSIDIME [Suspect]
     Active Substance: DORZOLAMIDE HYDROCHLORIDE\TIMOLOL MALEATE
     Indication: GLAUCOMA
     Dosage: 20 MG/ML PLUS 5 MG/ML
     Route: 047
     Dates: start: 20190206, end: 20190321
  3. DORZOLAMIDE HYDROCHLORIDE. [Suspect]
     Active Substance: DORZOLAMIDE HYDROCHLORIDE
     Indication: GLAUCOMA
     Route: 047
     Dates: start: 201811, end: 20190206

REACTIONS (2)
  - Condition aggravated [Not Recovered/Not Resolved]
  - Eczema eyelids [Not Recovered/Not Resolved]

NARRATIVE: CASE EVENT DATE: 201902
